FAERS Safety Report 9893081 (Version 2)
Quarter: 2015Q4

REPORT INFORMATION
  Report Type: Report from Study
  Country: US (occurrence: US)
  Receive Date: 20140213
  Receipt Date: 20151120
  Transmission Date: 20160305
  Serious: Yes (Other)
  Sender: FDA-Public Use
  Company Number: US-ROCHE-1324028

PATIENT
  Age: 44 Year
  Sex: Female
  Weight: 65 kg

DRUGS (32)
  1. IRINOTECAN [Concomitant]
     Active Substance: IRINOTECAN
     Dosage: WEEKLY (4 WEEKS ON 2 WEEKS OFF)
     Route: 042
  2. PEPCID [Concomitant]
     Active Substance: FAMOTIDINE
     Route: 042
  3. OXYCODONE HYDROCHLORIDE. [Concomitant]
     Active Substance: OXYCODONE HYDROCHLORIDE
     Route: 048
  4. ERIBULIN MESYLATE [Concomitant]
     Active Substance: ERIBULIN MESYLATE
     Route: 042
     Dates: start: 20110222, end: 20111019
  5. ATROPINE. [Concomitant]
     Active Substance: ATROPINE
     Route: 042
  6. DILAUDID [Concomitant]
     Active Substance: HYDROMORPHONE HYDROCHLORIDE
     Dosage: Q 4 TO 6 HOURS AS NEEDED
     Route: 048
  7. ALLEGRA [Concomitant]
     Active Substance: FEXOFENADINE HYDROCHLORIDE
     Route: 048
  8. DEXAMETHASONE. [Concomitant]
     Active Substance: DEXAMETHASONE
     Dosage: PRN
     Route: 048
  9. LUPRON DEPOT [Concomitant]
     Active Substance: LEUPROLIDE ACETATE
     Route: 030
  10. ZOFRAN [Concomitant]
     Active Substance: ONDANSETRON HYDROCHLORIDE
     Route: 042
  11. FLEXERIL [Concomitant]
     Active Substance: CYCLOBENZAPRINE HYDROCHLORIDE
     Dosage: AT BEDTIME
     Route: 048
  12. AVASTIN [Suspect]
     Active Substance: BEVACIZUMAB
     Indication: BREAST CANCER
     Route: 042
     Dates: start: 20120221
  13. CAMPTOSAR [Concomitant]
     Active Substance: IRINOTECAN HYDROCHLORIDE
     Route: 042
  14. BUPHENINE [Concomitant]
     Dosage: 3.3G/M2   WITH MEALS
     Route: 048
  15. IBUPROFEN. [Concomitant]
     Active Substance: IBUPROFEN
     Dosage: PRN WITH FOOD
     Route: 048
  16. SENOKOT-S [Concomitant]
     Active Substance: DOCUSATE SODIUM\SENNOSIDES
     Dosage: 8.6MG-50MG
     Route: 048
  17. FENTANYL. [Concomitant]
     Active Substance: FENTANYL
     Dosage: APPLY 2 PATCH (200MCG/H) EVERY 72 HOURS
     Route: 062
  18. XGEVA [Concomitant]
     Active Substance: DENOSUMAB
     Route: 058
     Dates: start: 20110303, end: 201202
  19. LUPRON DEPOT [Concomitant]
     Active Substance: LEUPROLIDE ACETATE
     Route: 030
     Dates: start: 20080205, end: 20080627
  20. BENADRYL [Concomitant]
     Active Substance: DIPHENHYDRAMINE HYDROCHLORIDE
     Route: 042
  21. EFFEXOR XR [Concomitant]
     Active Substance: VENLAFAXINE HYDROCHLORIDE
     Route: 048
  22. LISINOPRIL. [Concomitant]
     Active Substance: LISINOPRIL
     Route: 048
  23. COMPAZINE [Concomitant]
     Active Substance: PROCHLORPERAZINE MALEATE
     Route: 048
  24. CARVEDILOL. [Concomitant]
     Active Substance: CARVEDILOL
     Dosage: WITH FOOD
     Route: 048
  25. AVASTIN [Suspect]
     Active Substance: BEVACIZUMAB
     Indication: NEOPLASM MALIGNANT
  26. XGEVA [Concomitant]
     Active Substance: DENOSUMAB
     Route: 058
     Dates: start: 20110331
  27. SPIRONOLACTONE. [Concomitant]
     Active Substance: SPIRONOLACTONE
     Route: 048
  28. XELODA [Suspect]
     Active Substance: CAPECITABINE
     Indication: BREAST CANCER
     Dosage: FOR 2 WEEKS
     Route: 042
     Dates: start: 20110831, end: 201111
  29. LUPRON DEPOT [Concomitant]
     Active Substance: LEUPROLIDE ACETATE
     Route: 030
     Dates: start: 20101214
  30. AVASTIN [Suspect]
     Active Substance: BEVACIZUMAB
     Indication: BONE CANCER
     Route: 065
  31. CAMPTOSAR [Concomitant]
     Active Substance: IRINOTECAN HYDROCHLORIDE
     Route: 042
  32. ATIVAN [Concomitant]
     Active Substance: LORAZEPAM
     Dosage: PRN
     Route: 048

REACTIONS (9)
  - Diarrhoea [Unknown]
  - Dizziness [Unknown]
  - Haemorrhage [Unknown]
  - Dyspnoea [Unknown]
  - Hepatic steatosis [Unknown]
  - Disease progression [Unknown]
  - Blood pressure decreased [Recovered/Resolved]
  - Wheezing [Unknown]
  - Erythema [Unknown]

NARRATIVE: CASE EVENT DATE: 20111103
